FAERS Safety Report 4970552-1 (Version None)
Quarter: 2006Q2

REPORT INFORMATION
  Report Type: 
  Country: None (occurrence: None)
  Receive Date: 20060412
  Receipt Date: 20050729
  Transmission Date: 20061013
  Serious: Yes (Hospitalization, Disabling)
  Sender: FDA-Public Use
  Company Number: US-MERCK-0508USA00410

PATIENT
  Age: 51 Year
  Sex: Female
  Weight: 109 kg

DRUGS (3)
  1. VIOXX [Suspect]
     Indication: OSTEOARTHRITIS
     Route: 048
     Dates: start: 20001001, end: 20040901
  2. GLUCOSAMINE SULFATE [Concomitant]
     Indication: ARTHRITIS
     Route: 048
     Dates: start: 19990101
  3. ALEVE [Concomitant]
     Indication: HEADACHE
     Route: 048
     Dates: start: 20010922

REACTIONS (6)
  - DEPRESSION [None]
  - FLANK PAIN [None]
  - ISCHAEMIC STROKE [None]
  - JOINT INJURY [None]
  - NEPHROLITHIASIS [None]
  - POLYTRAUMATISM [None]
